FAERS Safety Report 13277832 (Version 1)
Quarter: 2017Q1

REPORT INFORMATION
  Report Type: Report from Study
  Country: CA (occurrence: CA)
  Receive Date: 20170228
  Receipt Date: 20170228
  Transmission Date: 20170428
  Serious: Yes (Other)
  Sender: FDA-Public Use
  Company Number: CA-JNJFOC-20170100264

PATIENT
  Age: 36 Year
  Sex: Male
  Weight: 92 kg

DRUGS (1)
  1. REMICADE [Suspect]
     Active Substance: INFLIXIMAB
     Indication: CROHN^S DISEASE
     Route: 042
     Dates: start: 20110324

REACTIONS (4)
  - Surgery [Unknown]
  - Limb mass [Unknown]
  - High frequency ablation [Unknown]
  - Palpitations [Unknown]

NARRATIVE: CASE EVENT DATE: 20170130
